FAERS Safety Report 17524163 (Version 1)
Quarter: 2020Q1

REPORT INFORMATION
  Report Type: Spontaneous
  Country: US (occurrence: US)
  Receive Date: 20200302
  Receipt Date: 20200302
  Transmission Date: 20200409
  Serious: No
  Sender: FDA-Public Use
  Company Number: None

PATIENT
  Age: 53 Year
  Sex: Female

DRUGS (22)
  1. ETODOLAC. [Concomitant]
     Active Substance: ETODOLAC
  2. SPIRONOLACT [Concomitant]
     Active Substance: SPIRONOLACTONE
  3. ASPIRIN-81 [Concomitant]
  4. FISH OIL [Concomitant]
     Active Substance: FISH OIL
  5. FOLIC ACID. [Concomitant]
     Active Substance: FOLIC ACID
  6. MULTIVITAMIN [Concomitant]
     Active Substance: VITAMINS
  7. TIZANIDINE. [Concomitant]
     Active Substance: TIZANIDINE
  8. VITAMIN D3 [Concomitant]
     Active Substance: CHOLECALCIFEROL
  9. CALCIUM+D3 [Concomitant]
     Active Substance: CALCIUM\CHOLECALCIFEROL
  10. FUROSEMIDE. [Concomitant]
     Active Substance: FUROSEMIDE
  11. KLOR-CON M10 [Concomitant]
     Active Substance: POTASSIUM CHLORIDE
  12. SIMVASTATIN. [Concomitant]
     Active Substance: SIMVASTATIN
  13. SUPER B [Concomitant]
  14. HUMIRA [Suspect]
     Active Substance: ADALIMUMAB
     Indication: RHEUMATOID ARTHRITIS
     Route: 058
     Dates: start: 20170209
  15. DULOXETINE. [Concomitant]
     Active Substance: DULOXETINE
  16. LUTEIN/ZEAXA [Concomitant]
  17. TRAMADOL HCL [Concomitant]
     Active Substance: TRAMADOL HYDROCHLORIDE
  18. CETIRIZINE [Concomitant]
     Active Substance: CETIRIZINE HYDROCHLORIDE
  19. METHOTREXATE. [Concomitant]
     Active Substance: METHOTREXATE
  20. OTREXUP [Concomitant]
     Active Substance: METHOTREXATE
  21. PROBIOTIC [Concomitant]
     Active Substance: PROBIOTICS NOS
  22. TOVIAZ [Concomitant]
     Active Substance: FESOTERODINE FUMARATE

REACTIONS (2)
  - Therapy cessation [None]
  - Surgery [None]

NARRATIVE: CASE EVENT DATE: 201912
